FAERS Safety Report 9984792 (Version 2)
Quarter: 2014Q1

REPORT INFORMATION
  Report Type: Report from Study
  Country: US (occurrence: US)
  Receive Date: 20140304
  Receipt Date: 20140304
  Transmission Date: 20141002
  Serious: No
  Sender: FDA-Public Use
  Company Number: US-ABBVIE-13P-163-1062259-00

PATIENT
  Age: 39 Year
  Sex: Female

DRUGS (11)
  1. HUMIRA [Suspect]
     Indication: CROHN^S DISEASE
     Dates: start: 201211, end: 20130101
  2. PENTASA [Concomitant]
     Indication: PRODUCT USED FOR UNKNOWN INDICATION
     Dosage: 2 PILLS FOUR TIMES DAILY
  3. IMURAN [Concomitant]
     Indication: PRODUCT USED FOR UNKNOWN INDICATION
  4. LISINOPRIL [Concomitant]
     Indication: HYPERTENSION
     Dosage: 12.5 MG DAILY
  5. ZOLOFT [Concomitant]
     Indication: STRESS
     Dosage: 100 MG DAILY
  6. NECON [Concomitant]
     Indication: CONTRACEPTION
  7. SIMVASTATIN [Concomitant]
     Indication: BLOOD CHOLESTEROL
     Dosage: LOW DOSE
  8. SYNTHROID [Concomitant]
     Indication: THYROID DISORDER
  9. MULTIVITAMIN [Concomitant]
     Indication: PRODUCT USED FOR UNKNOWN INDICATION
  10. VITAMIN D [Concomitant]
     Indication: HYPOVITAMINOSIS
     Dosage: WEEKLY
  11. VITAMIN B12 [Concomitant]
     Indication: HYPOVITAMINOSIS
     Dosage: DAILY

REACTIONS (4)
  - Injection site pain [Recovered/Resolved]
  - Feeling abnormal [Recovered/Resolved]
  - Injection site swelling [Recovered/Resolved]
  - Asthenia [Recovered/Resolved]
